FAERS Safety Report 9468868 (Version 1)
Quarter: 2013Q3

REPORT INFORMATION
  Report Type: Spontaneous
  Country: US (occurrence: US)
  Receive Date: 20130821
  Receipt Date: 20130821
  Transmission Date: 20140515
  Serious: Yes (Hospitalization)
  Sender: FDA-Public Use
  Company Number: US-B.I. PHARMACEUTICALS,INC./RIDGEFIELD-2013-BI-24891BP

PATIENT
  Age: 85 Year
  Sex: Male
  Weight: 72 kg

DRUGS (5)
  1. SPIRIVA [Suspect]
     Indication: CHRONIC OBSTRUCTIVE PULMONARY DISEASE
     Dosage: 18 MCG
     Route: 055
     Dates: start: 201301
  2. LEVOTHYROXINE [Concomitant]
     Indication: HYPOTHYROIDISM
     Dosage: 25 MG
     Route: 048
     Dates: start: 2013
  3. DILTIAZEM [Concomitant]
     Indication: ARRHYTHMIA
     Dosage: 240 MG
     Route: 048
     Dates: start: 201303
  4. AVODART [Concomitant]
     Indication: PROSTATOMEGALY
     Dosage: 0.5 MG
     Route: 048
     Dates: start: 2012
  5. PRAVASTATIN [Concomitant]
     Indication: BLOOD CHOLESTEROL INCREASED
     Dosage: 40 MG
     Route: 048
     Dates: start: 2011

REACTIONS (3)
  - Chest pain [Recovered/Resolved]
  - Pain in jaw [Recovered/Resolved]
  - Heart rate decreased [Recovered/Resolved]
